FAERS Safety Report 24822843 (Version 1)
Quarter: 2025Q1

REPORT INFORMATION
  Report Type: Spontaneous
  Country: FR (occurrence: FR)
  Receive Date: 20250109
  Receipt Date: 20250109
  Transmission Date: 20250408
  Serious: Yes (Death, Hospitalization, Other)
  Sender: BRISTOL-MYERS SQUIBB COMPANY
  Company Number: None

PATIENT
  Age: 78 Year
  Sex: Male
  Weight: 68 kg

DRUGS (3)
  1. POMALIDOMIDE [Suspect]
     Active Substance: POMALIDOMIDE
     Indication: Plasma cell myeloma
     Dosage: 4 MG/DAY FROM DAY 1 TO DAY 21 OF EACH 28-DAY CYCLE
     Route: 048
     Dates: start: 20240409
  2. DEXAMETHASONE SODIUM PHOSPHATE [Suspect]
     Active Substance: DEXAMETHASONE SODIUM PHOSPHATE
     Indication: Plasma cell myeloma
     Dosage: 40 MG ON D1, D8 AND D15 OF EACH 28-DAY CYCLE, ?20 MG/5 ML, SOLUTION FOR INJECTION IN AMPOULE, 3 CYCL
     Route: 042
     Dates: start: 20240409
  3. CARFILZOMIB [Suspect]
     Active Substance: CARFILZOMIB
     Indication: Plasma cell myeloma
     Dosage: 56 MG/M? ON D1, D8 AND D15 OF EACH 28-DAY CYCLE?3 CYCLICAL
     Route: 042
     Dates: start: 20240409

REACTIONS (2)
  - Acute myocardial infarction [Recovering/Resolving]
  - Cardio-respiratory arrest [Fatal]

NARRATIVE: CASE EVENT DATE: 20240523
